FAERS Safety Report 16162244 (Version 1)
Quarter: 2019Q2

REPORT INFORMATION
  Report Type: Spontaneous
  Country: US (occurrence: US)
  Receive Date: 20190404
  Receipt Date: 20190404
  Transmission Date: 20190711
  Serious: No
  Sender: FDA-Public Use
  Company Number: None

PATIENT
  Age: 64 Year
  Sex: Female
  Weight: 69.75 kg

DRUGS (9)
  1. MAGNESIUM [Concomitant]
     Active Substance: MAGNESIUM
  2. BUSPIRONE [Concomitant]
     Active Substance: BUSPIRONE HYDROCHLORIDE
  3. AIMOVIG [Suspect]
     Active Substance: ERENUMAB-AOOE
     Indication: MIGRAINE
     Route: 030
     Dates: start: 20181015, end: 20181111
  4. AMITRIPYTLINE [Concomitant]
  5. LEVOTHYROXINE. [Concomitant]
     Active Substance: LEVOTHYROXINE
  6. ELETRIPTAN. [Concomitant]
     Active Substance: ELETRIPTAN
  7. FIORICET [Concomitant]
     Active Substance: ACETAMINOPHEN\BUTALBITAL\CAFFEINE
  8. CALCIUM [Concomitant]
     Active Substance: CALCIUM
  9. VITAMIN D [Concomitant]
     Active Substance: VITAMIN D NOS

REACTIONS (10)
  - Paradoxical drug reaction [None]
  - Vertigo [None]
  - Arthralgia [None]
  - Rheumatoid arthritis [None]
  - Myalgia [None]
  - Drug ineffective [None]
  - Autoimmune disorder [None]
  - Blood pressure inadequately controlled [None]
  - Blood thyroid stimulating hormone increased [None]
  - Dyspnoea [None]

NARRATIVE: CASE EVENT DATE: 20181011
